FAERS Safety Report 15977951 (Version 3)
Quarter: 2019Q2

REPORT INFORMATION
  Report Type: Report from Study
  Country: None (occurrence: US)
  Receive Date: 20190218
  Receipt Date: 20190604
  Transmission Date: 20190711
  Serious: Yes (Hospitalization, Other)
  Sender: FDA-Public Use
  Company Number: US-ABBVIE-19K-163-2622394-00

PATIENT
  Age: 55 Year
  Sex: Female

DRUGS (1)
  1. HUMIRA [Suspect]
     Active Substance: ADALIMUMAB
     Indication: RHEUMATOID ARTHRITIS
     Route: 058
     Dates: start: 20181206, end: 20190523

REACTIONS (17)
  - Ovarian cyst [Unknown]
  - Sciatic nerve neuropathy [Unknown]
  - Arthralgia [Unknown]
  - Gait disturbance [Recovering/Resolving]
  - Musculoskeletal stiffness [Recovering/Resolving]
  - Pruritus generalised [Unknown]
  - Arthralgia [Recovering/Resolving]
  - Drug hypersensitivity [Unknown]
  - Joint swelling [Recovering/Resolving]
  - Peripheral swelling [Recovering/Resolving]
  - Pain [Recovering/Resolving]
  - Therapeutic product effect incomplete [Unknown]
  - Pain in extremity [Recovering/Resolving]
  - Headache [Recovered/Resolved]
  - Rash [Unknown]
  - Pain [Unknown]
  - Joint stiffness [Recovering/Resolving]

NARRATIVE: CASE EVENT DATE: 201812
